FAERS Safety Report 21779712 (Version 1)
Quarter: 2022Q4

REPORT INFORMATION
  Report Type: Spontaneous
  Country: BR (occurrence: BR)
  Receive Date: 20221226
  Receipt Date: 20221226
  Transmission Date: 20230113
  Serious: Yes (Death, Other)
  Sender: FDA-Public Use
  Company Number: BR-009507513-2211BRA008253

PATIENT
  Age: 88 Year
  Sex: Female
  Weight: 42.5 kg

DRUGS (17)
  1. INVANZ [Suspect]
     Active Substance: ERTAPENEM SODIUM
     Indication: Pneumonia
     Dosage: 1 AMPOULE OF 1 GRAM, DAILY
     Dates: start: 20221117, end: 20221123
  2. INVANZ [Suspect]
     Active Substance: ERTAPENEM SODIUM
     Indication: Pleural effusion
  3. EPOETIN ALFA [Concomitant]
     Active Substance: ERYTHROPOIETIN
     Indication: Anaemia
     Dosage: 4000 IU, 1 AMPOULE EACH 15 DAYS
     Route: 058
     Dates: start: 2020
  4. AMIODARONE HYDROCHLORIDE [Concomitant]
     Active Substance: AMIODARONE HYDROCHLORIDE
     Dosage: 200 MG (1 TABLET) DAILY IN THE MORNING
     Route: 048
  5. CARVEDILOL [Concomitant]
     Active Substance: CARVEDILOL
     Dosage: 0.5 TABLET DAILY IN THE MORNING
     Route: 048
  6. PURAN [Concomitant]
     Active Substance: LEVOTHYROXINE SODIUM
     Dosage: 50 MG (1 TABLET) FASTING DAILY
     Route: 048
  7. ALLOPURINOL [Concomitant]
     Active Substance: ALLOPURINOL
     Dosage: 100 MG DAILY
  8. FUROSEMIDE [Concomitant]
     Active Substance: FUROSEMIDE
     Dosage: 40 MG, DAILY
  9. SIMVASTATIN [Concomitant]
     Active Substance: SIMVASTATIN
     Dosage: 0.5 TABLET DAILY AT NIGHT
  10. ASPIRIN [Concomitant]
     Active Substance: ASPIRIN
     Dosage: 100 MG, DAILY
  11. DONEPEZIL [Concomitant]
     Active Substance: DONEPEZIL
     Dosage: 5 MG, DAILY
  12. TRAZODONE HYDROCHLORIDE [Concomitant]
     Active Substance: TRAZODONE HYDROCHLORIDE
     Dosage: 50 MG (1 TABLET) DAILY AT NIGHT
     Route: 048
  13. FOLIC ACID [Concomitant]
     Active Substance: FOLIC ACID
     Dosage: 5 MG, EVERY OTHER DAY
  14. FERROUS SULFATE [Concomitant]
     Active Substance: FERROUS SULFATE
     Dosage: 124 MG EVERY OTHER DAY
  15. OMEPRAZOLE [Concomitant]
     Active Substance: OMEPRAZOLE
     Dosage: COMPOUNDED IN DROPS, 20 MG, DAILY
  16. ZINC GLUCONATE [Concomitant]
     Active Substance: ZINC GLUCONATE
     Dosage: 20 MG DAILY, COMPUNDED
  17. QUETIAPINE [Concomitant]
     Active Substance: QUETIAPINE
     Dosage: 25 MG, 1 TABLET IN THE MORNING AND 1 TABLET AT NIGHT, MANIPULATED

REACTIONS (12)
  - Death [Fatal]
  - Therapeutic response decreased [Unknown]
  - Ill-defined disorder [Unknown]
  - Respiratory depth increased [Unknown]
  - Speech disorder [Unknown]
  - Bedridden [Unknown]
  - Fatigue [Unknown]
  - Product storage error [Unknown]
  - Product physical consistency issue [Unknown]
  - Poor quality product administered [Unknown]
  - Poor quality product administered [Unknown]
  - Product use issue [Unknown]

NARRATIVE: CASE EVENT DATE: 20220101
